FAERS Safety Report 23436290 (Version 1)
Quarter: 2024Q1

REPORT INFORMATION
  Report Type: Spontaneous
  Country: US (occurrence: US)
  Receive Date: 20240124
  Receipt Date: 20240124
  Transmission Date: 20240410
  Serious: Yes (Hospitalization)
  Sender: FDA-Public Use
  Company Number: US-IHL-000472

PATIENT
  Age: 35 Year
  Sex: Female

DRUGS (22)
  1. PALIPERIDONE [Suspect]
     Active Substance: PALIPERIDONE
     Indication: Psychotic disorder
     Route: 048
  2. PALIPERIDONE [Suspect]
     Active Substance: PALIPERIDONE
     Indication: Schizoaffective disorder
     Route: 048
  3. PALIPERIDONE PALMITATE [Suspect]
     Active Substance: PALIPERIDONE PALMITATE
     Indication: Schizoaffective disorder
     Route: 030
     Dates: start: 20190920
  4. PALIPERIDONE PALMITATE [Suspect]
     Active Substance: PALIPERIDONE PALMITATE
     Indication: Schizoaffective disorder
     Route: 030
     Dates: start: 20190924
  5. PALIPERIDONE PALMITATE [Suspect]
     Active Substance: PALIPERIDONE PALMITATE
     Indication: Schizoaffective disorder
     Route: 030
     Dates: start: 20191105
  6. PALIPERIDONE PALMITATE [Suspect]
     Active Substance: PALIPERIDONE PALMITATE
     Indication: Schizoaffective disorder
     Route: 030
     Dates: start: 20191108
  7. PALIPERIDONE PALMITATE [Suspect]
     Active Substance: PALIPERIDONE PALMITATE
     Indication: Schizoaffective disorder
     Route: 030
     Dates: start: 20191111
  8. LORAZEPAM [Suspect]
     Active Substance: LORAZEPAM
     Indication: Psychotic disorder
     Route: 048
  9. QUETIAPINE [Suspect]
     Active Substance: QUETIAPINE
     Indication: Psychotic disorder
     Route: 065
  10. QUETIAPINE [Suspect]
     Active Substance: QUETIAPINE
     Indication: Schizoaffective disorder
     Route: 065
  11. PALIPERIDONE [Suspect]
     Active Substance: PALIPERIDONE
     Indication: Psychotic disorder
     Route: 048
  12. PALIPERIDONE [Suspect]
     Active Substance: PALIPERIDONE
     Indication: Schizoaffective disorder
     Route: 048
  13. DIVALPROEX SODIUM [Suspect]
     Active Substance: DIVALPROEX SODIUM
     Indication: Psychotic disorder
     Route: 065
  14. QUETIAPINE [Suspect]
     Active Substance: QUETIAPINE
     Indication: Psychotic disorder
     Route: 065
     Dates: start: 20191109, end: 20191114
  15. QUETIAPINE [Suspect]
     Active Substance: QUETIAPINE
     Indication: Schizoaffective disorder
     Route: 065
     Dates: start: 20191109, end: 20191114
  16. OLANZAPINE [Suspect]
     Active Substance: OLANZAPINE
     Indication: Agitation
     Route: 030
  17. CLOZAPINE [Suspect]
     Active Substance: CLOZAPINE
     Indication: Schizophrenia
     Route: 065
     Dates: start: 20191121, end: 20191205
  18. GLYCOPYRROLATE [Suspect]
     Active Substance: GLYCOPYRROLATE
     Indication: Salivary hypersecretion
     Route: 065
     Dates: start: 20191209, end: 20191224
  19. LAMOTRIGINE [Suspect]
     Active Substance: LAMOTRIGINE
     Indication: Product used for unknown indication
     Route: 065
  20. ESCITALOPRAM [Suspect]
     Active Substance: ESCITALOPRAM OXALATE
     Indication: Product used for unknown indication
     Route: 065
  21. HALOPERIDOL [Suspect]
     Active Substance: HALOPERIDOL
     Indication: Agitation
     Route: 030
  22. CLOZAPINE [Suspect]
     Active Substance: CLOZAPINE
     Indication: Schizophrenia
     Route: 065
     Dates: start: 20191226

REACTIONS (10)
  - Psychotic disorder [Recovered/Resolved]
  - Schizoaffective disorder [Recovered/Resolved]
  - Treatment noncompliance [Unknown]
  - Product dose omission issue [Unknown]
  - Therapy non-responder [Unknown]
  - Psychiatric decompensation [Recovered/Resolved]
  - Tardive dyskinesia [Recovered/Resolved]
  - Hyperprolactinaemia [Recovering/Resolving]
  - Salivary hypersecretion [Recovered/Resolved]
  - Akathisia [Recovered/Resolved]

NARRATIVE: CASE EVENT DATE: 20191114
